FAERS Safety Report 11690487 (Version 2)
Quarter: 2015Q4

REPORT INFORMATION
  Report Type: Spontaneous
  Country: JP (occurrence: JP)
  Receive Date: 20151102
  Receipt Date: 20151110
  Transmission Date: 20160304
  Serious: Yes (Death, Hospitalization)
  Sender: FDA-Public Use
  Company Number: JP-ROCHE-1654062

PATIENT
  Age: 70 Year
  Sex: Female
  Weight: 46 kg

DRUGS (12)
  1. CLOPIDOGREL SULFATE [Concomitant]
     Active Substance: CLOPIDOGREL BISULFATE
     Route: 048
  2. MAGMITT [Concomitant]
     Active Substance: MAGNESIUM OXIDE
     Route: 048
  3. KADCYLA [Suspect]
     Active Substance: ADO-TRASTUZUMAB EMTANSINE
     Indication: BREAST CANCER
     Route: 041
     Dates: start: 20150515, end: 20150515
  4. KADCYLA [Suspect]
     Active Substance: ADO-TRASTUZUMAB EMTANSINE
     Route: 041
     Dates: start: 20150828, end: 20150828
  5. NEXIUM [Concomitant]
     Active Substance: ESOMEPRAZOLE MAGNESIUM
     Route: 048
  6. RANMARK [Concomitant]
     Active Substance: DENOSUMAB
     Indication: PAIN
     Route: 065
     Dates: start: 20150406
  7. GLACTIV [Concomitant]
     Active Substance: SITAGLIPTIN
     Route: 048
  8. KADCYLA [Suspect]
     Active Substance: ADO-TRASTUZUMAB EMTANSINE
     Dosage: RECEIEVD MOST RECENT DOSE ON 06/OCT/2015
     Route: 041
     Dates: start: 20151006
  9. ARTIST [Concomitant]
     Active Substance: CARVEDILOL
     Route: 048
  10. REBAMIPIDE [Concomitant]
     Active Substance: REBAMIPIDE
     Route: 048
  11. BAYASPIRIN [Concomitant]
     Active Substance: ASPIRIN
     Route: 048
  12. KADCYLA [Suspect]
     Active Substance: ADO-TRASTUZUMAB EMTANSINE
     Route: 041
     Dates: start: 20150713, end: 20150713

REACTIONS (1)
  - Lung disorder [Fatal]

NARRATIVE: CASE EVENT DATE: 20151013
